FAERS Safety Report 4982223-6 (Version None)
Quarter: 2006Q2

REPORT INFORMATION
  Report Type: 
  Country: None (occurrence: None)
  Receive Date: 20060419
  Receipt Date: 20060329
  Transmission Date: 20061013
  Serious: Yes (Other)
  Sender: FDA-Public Use
  Company Number: US200603007096

PATIENT
  Age: 80 Year
  Sex: Female

DRUGS (2)
  1. HUMULIN R [Suspect]
     Indication: DIABETES MELLITUS
  2. HUMULIN N [Suspect]
     Indication: DIABETES MELLITUS

REACTIONS (7)
  - BLINDNESS [None]
  - CATARACT OPERATION [None]
  - EYE HAEMORRHAGE [None]
  - EYE SWELLING [None]
  - INTRAOCULAR PRESSURE INCREASED [None]
  - SWELLING [None]
  - VISION BLURRED [None]
